FAERS Safety Report 12312305 (Version 2)
Quarter: 2016Q2

REPORT INFORMATION
  Report Type: Report from Study
  Country: US (occurrence: US)
  Receive Date: 20160428
  Receipt Date: 20160518
  Transmission Date: 20160815
  Serious: Yes (Hospitalization)
  Sender: FDA-Public Use
  Company Number: US-ROCHE-1747958

PATIENT
  Age: 66 Year
  Sex: Male
  Weight: 88.7 kg

DRUGS (10)
  1. PERCOCET [Concomitant]
     Active Substance: ACETAMINOPHEN\OXYCODONE HYDROCHLORIDE
     Route: 065
     Dates: start: 20160308
  2. CAPECITABINE. [Suspect]
     Active Substance: CAPECITABINE
     Dosage: DOSE REDUCED
     Route: 042
     Dates: start: 20151212
  3. PREDNISONE. [Concomitant]
     Active Substance: PREDNISONE
  4. CAPECITABINE. [Suspect]
     Active Substance: CAPECITABINE
     Indication: ADENOCARCINOMA GASTRIC
     Dosage: DAY 1-14?DATE OF LAST DOSE PRIOR TO EVENT 08/MAR/2016
     Route: 048
     Dates: start: 20150914
  5. DECADRON [Concomitant]
     Active Substance: DEXAMETHASONE
     Route: 065
     Dates: start: 20150914
  6. NEUPOGEN [Concomitant]
     Active Substance: FILGRASTIM
     Route: 065
     Dates: start: 20151208
  7. CISPLATIN. [Suspect]
     Active Substance: CISPLATIN
     Indication: ADENOCARCINOMA GASTRIC
     Dosage: ON DAY 1 ALL ON A 21 DAY CYCLE
     Route: 042
     Dates: start: 20150914, end: 20160216
  8. OXYCODONE [Concomitant]
     Active Substance: OXYCODONE
     Route: 065
     Dates: start: 20160308
  9. OXYCONTIN [Concomitant]
     Active Substance: OXYCODONE HYDROCHLORIDE
     Route: 065
     Dates: start: 20160308
  10. FLEXERIL [Concomitant]
     Active Substance: CYCLOBENZAPRINE HYDROCHLORIDE
     Route: 065
     Dates: start: 20160304, end: 20160308

REACTIONS (3)
  - Blood bilirubin increased [Recovering/Resolving]
  - Liver disorder [Recovering/Resolving]
  - Jaundice [Not Recovered/Not Resolved]

NARRATIVE: CASE EVENT DATE: 20160317
